FAERS Safety Report 4677987-5 (Version None)
Quarter: 2005Q2

REPORT INFORMATION
  Report Type: 
  Country: None (occurrence: None)
  Receive Date: 20050531
  Receipt Date: 20050520
  Transmission Date: 20051028
  Serious: Yes (Hospitalization)
  Sender: FDA-Public Use
  Company Number: 2005AP02994

PATIENT
  Sex: Male

DRUGS (2)
  1. CASODEX [Suspect]
     Indication: PROSTATE CANCER
     Route: 048
     Dates: start: 20050201
  2. LEUPLIN SR [Concomitant]
     Indication: PROSTATE CANCER
     Route: 058
     Dates: start: 20050201

REACTIONS (4)
  - ANAEMIA [None]
  - BONE MARROW DEPRESSION [None]
  - PLATELET COUNT DECREASED [None]
  - WHITE BLOOD CELL COUNT DECREASED [None]
